FAERS Safety Report 10157569 (Version 1)
Quarter: 2014Q2

REPORT INFORMATION
  Report Type: Spontaneous
  Country: FR (occurrence: FR)
  Receive Date: 20140507
  Receipt Date: 20140507
  Transmission Date: 20141212
  Serious: Yes (Hospitalization)
  Sender: FDA-Public Use
  Company Number: FR-SA-2014SA054591

PATIENT
  Age: 81 Year
  Sex: Male

DRUGS (8)
  1. LOVENOX [Suspect]
     Indication: PRODUCT USED FOR UNKNOWN INDICATION
     Route: 058
     Dates: start: 20140214, end: 20140317
  2. ORBENINE [Suspect]
     Indication: PRODUCT USED FOR UNKNOWN INDICATION
     Route: 048
  3. CORDARONE [Concomitant]
     Dosage: DOSE: 1 DF/D5D/WEEK
  4. TAHOR [Concomitant]
     Dosage: STRENGTH: 20 MG
  5. RENITEC [Concomitant]
     Dosage: STRENGTH: 20 MG
  6. INEXIUM [Concomitant]
     Dosage: STRENGTH: 40 MG
  7. ASPEGIC [Concomitant]
  8. CLAFORAN [Concomitant]
     Dates: start: 20140320, end: 20140324

REACTIONS (2)
  - Nephritis allergic [Recovering/Resolving]
  - Renal failure acute [Recovering/Resolving]
